APPROVED DRUG PRODUCT: MYCOPHENOLATE MOFETIL
Active Ingredient: MYCOPHENOLATE MOFETIL
Strength: 200MG/ML
Dosage Form/Route: FOR SUSPENSION;ORAL
Application: A214525 | Product #001 | TE Code: AB
Applicant: LANNETT CO INC
Approved: Jul 29, 2021 | RLD: No | RS: No | Type: RX